FAERS Safety Report 11168323 (Version 2)
Quarter: 2015Q3

REPORT INFORMATION
  Report Type: Spontaneous
  Country: CN (occurrence: CN)
  Receive Date: 20150605
  Receipt Date: 20150713
  Transmission Date: 20151125
  Serious: Yes (Other)
  Sender: FDA-Public Use
  Company Number: CN-BAYER-2015-294105

PATIENT
  Age: 66 Year
  Sex: Male

DRUGS (2)
  1. XARELTO [Suspect]
     Active Substance: RIVAROXABAN
     Indication: CORONARY ARTERY BYPASS
     Dosage: DAILY DOSE 1 DF
     Dates: start: 20150521
  2. GLUCOBAY [Suspect]
     Active Substance: ACARBOSE
     Indication: DIABETES MELLITUS
     Dosage: UNK
     Dates: start: 20150521

REACTIONS (4)
  - Sweat gland disorder [None]
  - Asthenia [None]
  - Off label use [None]
  - Diabetes mellitus inadequate control [None]

NARRATIVE: CASE EVENT DATE: 2015
